FAERS Safety Report 17021953 (Version 4)
Quarter: 2019Q4

REPORT INFORMATION
  Report Type: Spontaneous
  Country: US (occurrence: US)
  Receive Date: 20191112
  Receipt Date: 20191210
  Transmission Date: 20200122
  Serious: Yes (Hospitalization, Disabling, Other)
  Sender: FDA-Public Use
  Company Number: US-GILEAD-2019-0436821

PATIENT
  Age: 43 Year
  Sex: Male

DRUGS (8)
  1. ATRIPLA [Suspect]
     Active Substance: EFAVIRENZ\EMTRICITABINE\TENOFOVIR DISOPROXIL FUMARATE
     Indication: HIV INFECTION
     Dosage: UNK
     Route: 065
     Dates: start: 201112, end: 201608
  2. TIVICAY [Concomitant]
     Active Substance: DOLUTEGRAVIR SODIUM
     Indication: HIV INFECTION
     Dosage: UNK
     Dates: start: 201608, end: 201711
  3. ATRIPLA [Suspect]
     Active Substance: EFAVIRENZ\EMTRICITABINE\TENOFOVIR DISOPROXIL FUMARATE
     Dosage: UNK
     Route: 065
     Dates: start: 2017
  4. HARVONI [Suspect]
     Active Substance: LEDIPASVIR\SOFOSBUVIR
     Indication: HEPATITIS C
     Route: 065
  5. DESCOVY [Suspect]
     Active Substance: EMTRICITABINE\TENOFOVIR ALAFENAMIDE FUMARATE
     Indication: HIV INFECTION
     Dosage: UNK
     Route: 065
     Dates: start: 2018
  6. TRUVADA [Suspect]
     Active Substance: EMTRICITABINE\TENOFOVIR DISOPROXIL FUMARATE
     Indication: HIV INFECTION
     Dosage: UNK
     Route: 065
     Dates: start: 201608, end: 201711
  7. ISENTRESS [Concomitant]
     Active Substance: RALTEGRAVIR POTASSIUM
  8. TIVICAY [Concomitant]
     Active Substance: DOLUTEGRAVIR SODIUM
     Dosage: UNK
     Dates: start: 2018

REACTIONS (16)
  - Headache [Recovered/Resolved]
  - Bone pain [Unknown]
  - Drug dependence [Unknown]
  - Intervertebral disc degeneration [Unknown]
  - Disability [Not Recovered/Not Resolved]
  - Bone density decreased [Not Recovered/Not Resolved]
  - Spinal fusion surgery [Unknown]
  - Pain in extremity [Unknown]
  - Tuberculosis [Recovered/Resolved]
  - Renal failure [Not Recovered/Not Resolved]
  - Tooth loss [Recovered/Resolved]
  - Ill-defined disorder [Unknown]
  - Hepatitis C [Recovered/Resolved]
  - Intervertebral disc protrusion [Unknown]
  - Spinal fusion surgery [Unknown]
  - Cerebral disorder [Not Recovered/Not Resolved]

NARRATIVE: CASE EVENT DATE: 20151029
